FAERS Safety Report 14895815 (Version 1)
Quarter: 2018Q2

REPORT INFORMATION
  Report Type: Report from Study
  Country: IT (occurrence: IT)
  Receive Date: 20180515
  Receipt Date: 20180515
  Transmission Date: 20180711
  Serious: Yes (Hospitalization)
  Sender: FDA-Public Use
  Company Number: IT-ROCHE-2121016

PATIENT
  Age: 40 Year
  Sex: Male
  Weight: 66 kg

DRUGS (4)
  1. BEVACIZUMAB. [Suspect]
     Active Substance: BEVACIZUMAB
     Indication: COLORECTAL CANCER METASTATIC
     Dosage: DATE OF MOST RECENT DOSE OF BEVACIZUMAB 330 MG ON 17/APR/2018?NUMBER OF CYCLE PRIOR TO SAE : 5
     Route: 042
     Dates: start: 20180123
  2. 5-FLUOROURACIL [Suspect]
     Active Substance: FLUOROURACIL
     Dosage: DATE OF MOST RECENT DOSE OF 5-FLUOROURACIL 720 MG : 17/APR/2018?NUMBER OF CYCLE PRIOR TO SAE : 5
     Route: 042
     Dates: start: 20180123
  3. 5-FLUOROURACIL [Suspect]
     Active Substance: FLUOROURACIL
     Indication: COLORECTAL CANCER METASTATIC
     Dosage: DATE OF MOST RECENT DOSE OF 5-FLUOROURACIL 4320 MG : 17/APR/2018?NUMBER OF CYCLE PRIOR TO SAE : 5
     Route: 042
     Dates: start: 20180123
  4. IRINOTECAN [Suspect]
     Active Substance: IRINOTECAN
     Indication: COLORECTAL CANCER METASTATIC
     Dosage: DATE OF MOST RECENT DOSE OF IRINOTECAN 324 MG : 17/APR/2018?NUMBER OF CYCLE PRIOR TO SAE : 5
     Route: 042
     Dates: start: 20180123

REACTIONS (3)
  - Diarrhoea [Not Recovered/Not Resolved]
  - Pyrexia [Not Recovered/Not Resolved]
  - Anaemia [Not Recovered/Not Resolved]

NARRATIVE: CASE EVENT DATE: 20180422
